FAERS Safety Report 8551999-3 (Version None)
Quarter: 2012Q3

REPORT INFORMATION
  Report Type: 
  Country: None (occurrence: None)
  Receive Date: 20120730
  Receipt Date: 20120718
  Transmission Date: 20120928
  Serious: Yes (Other)
  Sender: FDA-Public Use
  Company Number: DE-ELI_LILLY_AND_COMPANY-DE201207005772

PATIENT
  Sex: Male

DRUGS (1)
  1. BYDUREON [Suspect]
     Dosage: 2 MG, UNKNOWN
     Route: 058

REACTIONS (1)
  - VASCULITIS [None]
